FAERS Safety Report 13577571 (Version 1)
Quarter: 2017Q2

REPORT INFORMATION
  Report Type: Spontaneous
  Country: CH (occurrence: CH)
  Receive Date: 20170524
  Receipt Date: 20170524
  Transmission Date: 20170830
  Serious: Yes (Hospitalization)
  Sender: FDA-Public Use
  Company Number: CH-ALLERGAN-1721213US

PATIENT
  Age: 70 Year
  Sex: Female

DRUGS (3)
  1. MEMANTINE HCL - BP [Suspect]
     Active Substance: MEMANTINE
     Indication: DEMENTIA ALZHEIMER^S TYPE
     Dosage: 20 MG, QD
  2. REMINYL [Interacting]
     Active Substance: GALANTAMINE
     Indication: DEMENTIA ALZHEIMER^S TYPE
     Dosage: 8 MG, UNK
     Route: 065
  3. QUETIAPIN SANDOZ [Interacting]
     Active Substance: QUETIAPINE
     Indication: COGNITIVE DISORDER
     Dosage: 25 MG, QD
     Route: 065
     Dates: start: 20170419

REACTIONS (3)
  - Drug interaction [Recovered/Resolved]
  - Presyncope [Recovered/Resolved]
  - Bradycardia [Recovered/Resolved]

NARRATIVE: CASE EVENT DATE: 20170419
